FAERS Safety Report 10425762 (Version 2)
Quarter: 2014Q3

REPORT INFORMATION
  Report Type: Spontaneous
  Country: US (occurrence: US)
  Receive Date: 20140903
  Receipt Date: 20140903
  Transmission Date: 20150326
  Serious: No
  Sender: FDA-Public Use
  Company Number: US-B.I. PHARMACEUTICALS,INC./RIDGEFIELD-2014-BI-32433BP

PATIENT
  Sex: Male
  Weight: 114.76 kg

DRUGS (4)
  1. UNSPECIFIED MEDICATIONS [Concomitant]
     Active Substance: UNSPECIFIED INGREDIENT
     Indication: PRODUCT USED FOR UNKNOWN INDICATION
     Route: 065
  2. TOVIAZ [Suspect]
     Active Substance: FESOTERODINE FUMARATE
     Indication: URINARY INCONTINENCE
  3. FLOMAX [Suspect]
     Active Substance: TAMSULOSIN HYDROCHLORIDE
     Indication: DYSURIA
     Route: 065
  4. TOVIAZ [Suspect]
     Active Substance: FESOTERODINE FUMARATE
     Indication: HYPERTONIC BLADDER
     Dosage: 8 MG
     Route: 048
     Dates: start: 20140522, end: 20140609

REACTIONS (9)
  - Micturition disorder [Unknown]
  - Stomatitis [Unknown]
  - Dry mouth [Unknown]
  - Enuresis [Unknown]
  - Dysuria [Recovered/Resolved]
  - Renal pain [Unknown]
  - Back pain [Unknown]
  - Drug effect prolonged [Unknown]
  - Dysuria [Unknown]
